FAERS Safety Report 9761051 (Version 3)
Quarter: 2014Q1

REPORT INFORMATION
  Report Type: Spontaneous
  Country: US (occurrence: US)
  Receive Date: 20131216
  Receipt Date: 20140116
  Transmission Date: 20141002
  Serious: Yes (Other)
  Sender: FDA-Public Use
  Company Number: US-PFIZER INC-2013356213

PATIENT
  Age: 43 Year
  Sex: Male

DRUGS (4)
  1. VFEND [Suspect]
     Indication: FUNGAL INFECTION
     Route: 042
  2. VFEND [Suspect]
     Indication: FUNGAL INFECTION
     Dosage: 200 MG, 2X/DAY
     Dates: start: 20131015
  3. BUPRENORPHINE [Concomitant]
  4. SUBOXONE [Concomitant]
     Indication: DRUG ABUSE
     Dosage: 8 MG, 1X/DAY

REACTIONS (4)
  - Renal impairment [Recovered/Resolved]
  - Erectile dysfunction [Unknown]
  - Hyperhidrosis [Unknown]
  - Ejaculation failure [Unknown]
